FAERS Safety Report 14861641 (Version 1)
Quarter: 2018Q2

REPORT INFORMATION
  Report Type: Spontaneous
  Country: US (occurrence: US)
  Receive Date: 20180423
  Receipt Date: 20180423
  Transmission Date: 20180711
  Serious: Yes (Other)
  Sender: FDA-Public Use
  Company Number: None

PATIENT
  Age: 59 Year
  Sex: Female
  Weight: 85.5 kg

DRUGS (11)
  1. GENERIC ZYRTEC [Concomitant]
     Active Substance: CETIRIZINE HYDROCHLORIDE
  2. BUPROPION. [Concomitant]
     Active Substance: BUPROPION
  3. GABAPENTIN. [Concomitant]
     Active Substance: GABAPENTIN
  4. MAGNESIUM [Concomitant]
     Active Substance: MAGNESIUM
  5. LISINOPRIL. [Concomitant]
     Active Substance: LISINOPRIL
  6. BIOTIN [Concomitant]
     Active Substance: BIOTIN
  7. CALCIUM WITH D3 [Concomitant]
  8. FOLIC ACID. [Concomitant]
     Active Substance: FOLIC ACID
  9. PROLIA [Suspect]
     Active Substance: DENOSUMAB
     Indication: OSTEOPOROSIS
     Route: 058
     Dates: start: 20180409, end: 20180409
  10. ASPIRIN. [Concomitant]
     Active Substance: ASPIRIN
  11. MULTIVITAMIN [Concomitant]
     Active Substance: VITAMINS

REACTIONS (7)
  - Dizziness [None]
  - Fatigue [None]
  - Musculoskeletal stiffness [None]
  - Back pain [None]
  - Diarrhoea [None]
  - Dyspepsia [None]
  - Arthralgia [None]

NARRATIVE: CASE EVENT DATE: 20180410
